FAERS Safety Report 17851292 (Version 3)
Quarter: 2020Q3

REPORT INFORMATION
  Report Type: Report from Study
  Country: US (occurrence: US)
  Receive Date: 20200602
  Receipt Date: 20200813
  Transmission Date: 20201103
  Serious: Yes (Other)
  Sender: FDA-Public Use
  Company Number: US-BAYER-2020-083184

PATIENT
  Age: 56 Year
  Sex: Male

DRUGS (4)
  1. STIVARGA [Suspect]
     Active Substance: REGORAFENIB
     Indication: COLORECTAL CANCER
     Dosage: DAILY DOSE 80 MG LOW FAT MEAL
     Route: 048
     Dates: start: 20200505, end: 202005
  2. STIVARGA [Suspect]
     Active Substance: REGORAFENIB
     Indication: COLORECTAL CANCER
     Dosage: 120 MG DAILY
     Route: 048
     Dates: start: 20200513, end: 202005
  3. STIVARGA [Suspect]
     Active Substance: REGORAFENIB
     Indication: COLORECTAL CANCER
     Dosage: 80 MG DAILY
     Route: 048
     Dates: start: 20200603, end: 20200722
  4. STIVARGA [Suspect]
     Active Substance: REGORAFENIB
     Indication: COLORECTAL CANCER
     Dosage: DAILY DOSE 160 MG
     Route: 048
     Dates: start: 20200519, end: 2020

REACTIONS (12)
  - Off label use [None]
  - Dysphonia [Recovered/Resolved]
  - Hyperkeratosis [Not Recovered/Not Resolved]
  - Neuropathy peripheral [Recovered/Resolved]
  - Hyperkeratosis [Not Recovered/Not Resolved]
  - Colorectal cancer [Not Recovered/Not Resolved]
  - Diarrhoea [Recovered/Resolved]
  - Oral hyperaesthesia [Recovered/Resolved]
  - Weight decreased [Recovered/Resolved]
  - Hyperkeratosis [Recovered/Resolved]
  - Glossodynia [Recovered/Resolved]
  - Hyperkeratosis [Recovered/Resolved]

NARRATIVE: CASE EVENT DATE: 20200505
